FAERS Safety Report 15916279 (Version 1)
Quarter: 2019Q1

REPORT INFORMATION
  Report Type: Spontaneous
  Country: US (occurrence: US)
  Receive Date: 20190204
  Receipt Date: 20190204
  Transmission Date: 20190417
  Serious: Yes (Other)
  Sender: FDA-Public Use
  Company Number: US-MYLANLABS-2018M1097728

PATIENT
  Age: 73 Year
  Sex: Female

DRUGS (1)
  1. TOBI [Suspect]
     Active Substance: TOBRAMYCIN
     Indication: EYE INFECTION
     Dosage: UNK, (0.3% SOLUTIONS EVERY 2?3 H)
     Route: 065

REACTIONS (4)
  - Respiratory distress [Unknown]
  - Asthenia [Unknown]
  - Myasthenia gravis [Unknown]
  - Diplopia [Unknown]
